FAERS Safety Report 25423324 (Version 1)
Quarter: 2025Q2

REPORT INFORMATION
  Report Type: Spontaneous
  Country: US (occurrence: None)
  Receive Date: 20250611
  Receipt Date: 20250611
  Transmission Date: 20250716
  Serious: Yes (unspecified)
  Sender: FDA-CTU
  Company Number: None

PATIENT
  Age: 83 Year
  Sex: Male
  Weight: 116 kg

DRUGS (2)
  1. ERTAPENEM [Suspect]
     Active Substance: ERTAPENEM
     Indication: Osteomyelitis
     Route: 042
     Dates: start: 20250510, end: 20250515
  2. MEROPENEM [Suspect]
     Active Substance: MEROPENEM
     Dosage: FREQUENCY : TWICE A DAY;?
     Route: 042
     Dates: start: 202505, end: 20250516

REACTIONS (2)
  - Confusional state [None]
  - Seizure [None]

NARRATIVE: CASE EVENT DATE: 20250514
